FAERS Safety Report 26208479 (Version 1)
Quarter: 2025Q4

REPORT INFORMATION
  Report Type: Spontaneous
  Country: US (occurrence: US)
  Receive Date: 20251229
  Receipt Date: 20251229
  Transmission Date: 20260118
  Serious: No
  Sender: GALPHARM INTERNATIONAL
  Company Number: US-PERRIGO-24US011593

PATIENT
  Sex: Female

DRUGS (1)
  1. TIOCONAZOLE [Suspect]
     Active Substance: TIOCONAZOLE
     Indication: Infection
     Dosage: 300 MG, SINGLE
     Route: 067

REACTIONS (3)
  - Lymphatic disorder [Unknown]
  - Lymphadenitis [Unknown]
  - Drug ineffective [Unknown]
